FAERS Safety Report 6843046-6 (Version None)
Quarter: 2010Q3

REPORT INFORMATION
  Report Type: 
  Country: None (occurrence: None)
  Receive Date: 20100712
  Receipt Date: 20100521
  Transmission Date: 20110219
  Serious: Yes (Other)
  Sender: FDA-Public Use
  Company Number: 2280705-2010-00008

PATIENT
  Sex: Female

DRUGS (1)
  1. ORAJEL? SEVERE TOOTHACHE ORAL PAIN RELIEVER [Suspect]
     Indication: TOOTHACHE
     Dosage: APPLIED AROUND GUM LINE ONCE
     Dates: start: 20100520

REACTIONS (3)
  - LIP SWELLING [None]
  - SWELLING FACE [None]
  - UNEVALUABLE EVENT [None]
